FAERS Safety Report 5378966-5 (Version None)
Quarter: 2007Q3

REPORT INFORMATION
  Report Type: 
  Country: None (occurrence: None)
  Receive Date: 20070705
  Receipt Date: 20070627
  Transmission Date: 20080115
  Serious: Yes (Hospitalization)
  Sender: FDA-Public Use
  Company Number: US-AMGEN-STX224921

PATIENT
  Sex: Female
  Weight: 93.5 kg

DRUGS (7)
  1. ENBREL [Suspect]
     Indication: RHEUMATOID ARTHRITIS
     Route: 058
     Dates: start: 20040101
  2. HYDROXYCHLOROQUINE SULFATE [Concomitant]
     Route: 048
     Dates: start: 20050101
  3. SULFASALAZINE [Concomitant]
     Route: 048
     Dates: start: 20060101
  4. METHOTREXATE [Concomitant]
  5. PREDNISONE TAB [Concomitant]
  6. LISINOPRIL [Concomitant]
  7. FOLIC ACID [Concomitant]

REACTIONS (4)
  - INTERVERTEBRAL DISC PROTRUSION [None]
  - PRURITUS [None]
  - RHEUMATOID ARTHRITIS [None]
  - SPONDYLOLISTHESIS [None]
